FAERS Safety Report 21883012 (Version 1)
Quarter: 2023Q1

REPORT INFORMATION
  Report Type: Report from Study
  Country: US (occurrence: US)
  Receive Date: 20230119
  Receipt Date: 20230119
  Transmission Date: 20230418
  Serious: No
  Sender: FDA-Public Use
  Company Number: US-ABBVIE-4244375

PATIENT
  Sex: Male

DRUGS (1)
  1. MAVYRET [Suspect]
     Active Substance: GLECAPREVIR\PIBRENTASVIR
     Indication: Hepatitis C
     Dosage: TIME INTERVAL: 0.33333333 DAYS: 100MG/40MG
     Route: 048

REACTIONS (3)
  - Arthritis [Not Recovered/Not Resolved]
  - Renal pain [Not Recovered/Not Resolved]
  - Hepatic pain [Not Recovered/Not Resolved]
